FAERS Safety Report 10584685 (Version 1)
Quarter: 2014Q4

REPORT INFORMATION
  Report Type: Spontaneous
  Country: US (occurrence: US)
  Receive Date: 20141114
  Receipt Date: 20141114
  Transmission Date: 20150529
  Serious: Yes (Other)
  Sender: FDA-Public Use
  Company Number: US-TAKEDA-2014TUS011327

PATIENT
  Age: 54 Year
  Sex: Male
  Weight: 97.51 kg

DRUGS (2)
  1. SYNTHROID [Concomitant]
     Active Substance: LEVOTHYROXINE SODIUM
     Indication: THYROID DISORDER
     Dosage: UNK
     Route: 065
  2. PREVACID [Suspect]
     Active Substance: LANSOPRAZOLE
     Indication: GASTROOESOPHAGEAL REFLUX DISEASE
     Dosage: UNK
     Route: 048
     Dates: end: 2012

REACTIONS (3)
  - Hiatus hernia [Unknown]
  - Benign duodenal neoplasm [Unknown]
  - Benign gastric neoplasm [Unknown]

NARRATIVE: CASE EVENT DATE: 201203
